FAERS Safety Report 4705006-0 (Version None)
Quarter: 2005Q3

REPORT INFORMATION
  Report Type: 
  Country: None (occurrence: None)
  Receive Date: 20050701
  Receipt Date: 20050622
  Transmission Date: 20060218
  Serious: Yes (Hospitalization)
  Sender: FDA-Public Use
  Company Number: US-JNJFOC-20050400613

PATIENT
  Sex: Female
  Weight: 61.69 kg

DRUGS (21)
  1. INFLIXIMAB [Suspect]
     Indication: RHEUMATOID ARTHRITIS
     Route: 042
  2. WARFARIN [Suspect]
     Indication: DRUG USE FOR UNKNOWN INDICATION
  3. ATENOLOL [Concomitant]
  4. FOSAMAX [Concomitant]
  5. LEVOXYL [Concomitant]
  6. VITAMIN D [Concomitant]
     Dosage: ^50,000^ WEEKLY
  7. TYLENOL [Concomitant]
  8. ASPIRIN [Concomitant]
  9. CALCIUM GLUCONATE [Concomitant]
  10. GLUCOSAMINE/CHONDROITIN [Concomitant]
  11. GLUCOSAMINE/CHONDROITIN [Concomitant]
  12. GLUCOSAMINE/CHONDROITIN [Concomitant]
  13. GLUCOSAMINE/CHONDROITIN [Concomitant]
  14. MULTI-VITAMIN [Concomitant]
  15. MULTI-VITAMIN [Concomitant]
  16. MULTI-VITAMIN [Concomitant]
  17. MULTI-VITAMIN [Concomitant]
  18. MULTI-VITAMIN [Concomitant]
  19. MULTI-VITAMIN [Concomitant]
  20. MULTI-VITAMIN [Concomitant]
  21. MULTI-VITAMIN [Concomitant]

REACTIONS (2)
  - COAGULOPATHY [None]
  - EPISTAXIS [None]
